FAERS Safety Report 6287589-5 (Version None)
Quarter: 2009Q3

REPORT INFORMATION
  Report Type: 
  Country: None (occurrence: None)
  Receive Date: 20090727
  Receipt Date: 20090716
  Transmission Date: 20100115
  Serious: Yes (Hospitalization)
  Sender: FDA-Public Use
  Company Number: 8047759

PATIENT
  Age: 37 Year
  Sex: Female
  Weight: 71 kg

DRUGS (3)
  1. KEPPRA [Suspect]
     Indication: MYOCLONUS
     Dosage: 1000 MG 3/D PO
     Route: 048
     Dates: start: 20050131
  2. LABILENO [Suspect]
     Indication: MYOCLONUS
     Dosage: 500 MG /D PO
     Route: 048
     Dates: start: 20051219
  3. FENOBARBITAL [Suspect]
     Indication: MYOCLONUS
     Dosage: PO
     Route: 048
     Dates: start: 19901119

REACTIONS (3)
  - ABORTION SPONTANEOUS [None]
  - DRUG EXPOSURE DURING PREGNANCY [None]
  - PREGNANCY [None]
